FAERS Safety Report 8176101-1 (Version None)
Quarter: 2012Q1

REPORT INFORMATION
  Report Type: 
  Country: None (occurrence: None)
  Receive Date: 20120301
  Receipt Date: 20120222
  Transmission Date: 20120608
  Serious: Yes (Death, Life-Threatening, Hospitalization)
  Sender: FDA-Public Use
  Company Number: FR-BRISTOL-MYERS SQUIBB COMPANY-16325524

PATIENT
  Age: 86 Year
  Sex: Male

DRUGS (7)
  1. LASIX [Concomitant]
  2. POTASSIUM CHLORIDE [Concomitant]
  3. BISOPROLOL FUMARATE [Concomitant]
  4. PREDNISONE TAB [Concomitant]
  5. NOVOMIX [Concomitant]
  6. COUMADIN [Suspect]
     Indication: ATRIAL FIBRILLATION
     Dosage: READMINISTERED FROM 11-OCT-2011 TILL 14-OCT-2011
     Route: 048
  7. ESIDRIX [Concomitant]

REACTIONS (4)
  - RECTAL HAEMORRHAGE [None]
  - SHOCK HAEMORRHAGIC [None]
  - DEATH [None]
  - GASTROINTESTINAL HAEMORRHAGE [None]
